FAERS Safety Report 18417372 (Version 1)
Quarter: 2020Q4

REPORT INFORMATION
  Report Type: Spontaneous
  Country: US (occurrence: US)
  Receive Date: 20201022
  Receipt Date: 20201022
  Transmission Date: 20210114
  Serious: Yes (Other)
  Sender: FDA-Public Use
  Company Number: 2020SGN02332

PATIENT
  Sex: Female

DRUGS (4)
  1. CAPECITABINE. [Concomitant]
     Active Substance: CAPECITABINE
  2. TUKYSA [Suspect]
     Active Substance: TUCATINIB
     Indication: BREAST NEOPLASM
     Dosage: UNK
  3. TUKYSA [Suspect]
     Active Substance: TUCATINIB
     Dosage: 300 MG IN MORNING, 150 MG IN EVENING
  4. TRASTUZUMAB. [Concomitant]
     Active Substance: TRASTUZUMAB

REACTIONS (8)
  - Hepatic enzyme increased [Recovering/Resolving]
  - Dizziness [Unknown]
  - Unevaluable event [Unknown]
  - Diarrhoea [Unknown]
  - Drug-induced liver injury [Recovering/Resolving]
  - Product dose omission issue [Unknown]
  - Nausea [Unknown]
  - Dermatitis [Unknown]
